FAERS Safety Report 11640891 (Version 2)
Quarter: 2018Q1

REPORT INFORMATION
  Report Type: Spontaneous
  Country: US (occurrence: US)
  Receive Date: 20151019
  Receipt Date: 20180117
  Transmission Date: 20180508
  Serious: No
  Sender: FDA-Public Use
  Company Number: US-TAKEDA-2015TUS014185

PATIENT
  Age: 51 Year
  Sex: Female
  Weight: 79.37 kg

DRUGS (1)
  1. ENTYVIO [Suspect]
     Active Substance: VEDOLIZUMAB
     Indication: CROHN^S DISEASE
     Dosage: 300 MG, UNK
     Route: 042
     Dates: start: 20141010

REACTIONS (5)
  - Diarrhoea [Unknown]
  - Helicobacter infection [Recovered/Resolved]
  - Nausea [Not Recovered/Not Resolved]
  - Proctalgia [Unknown]
  - Fistula [Unknown]

NARRATIVE: CASE EVENT DATE: 201505
